FAERS Safety Report 24739941 (Version 1)
Quarter: 2024Q4

REPORT INFORMATION
  Report Type: Spontaneous
  Country: US (occurrence: US)
  Receive Date: 20241216
  Receipt Date: 20241216
  Transmission Date: 20250114
  Serious: Yes (Other)
  Sender: PFIZER
  Company Number: US-PFIZER INC-202400324758

PATIENT
  Age: 62 Year
  Sex: Female

DRUGS (2)
  1. BOSULIF [Suspect]
     Active Substance: BOSUTINIB MONOHYDRATE
     Dosage: 300MG BY MOUTH DAILY
     Route: 048
     Dates: start: 20241207
  2. BOSULIF [Suspect]
     Active Substance: BOSUTINIB MONOHYDRATE
     Dosage: UNK
     Dates: start: 20241210

REACTIONS (2)
  - Urinary retention [Unknown]
  - Swelling [Unknown]

NARRATIVE: CASE EVENT DATE: 20240101
